FAERS Safety Report 16466887 (Version 2)
Quarter: 2019Q3

REPORT INFORMATION
  Report Type: Spontaneous
  Country: US (occurrence: US)
  Receive Date: 20190624
  Receipt Date: 20190724
  Transmission Date: 20191004
  Serious: Yes (Other)
  Sender: FDA-Public Use
  Company Number: US-BEH-2019103121

PATIENT
  Age: 50 Year
  Sex: Female

DRUGS (2)
  1. HUMAN IMMUNOGLOBULIN (NC) [Suspect]
     Active Substance: HUMAN IMMUNOGLOBULIN G
     Indication: TRANSPLANT REJECTION
     Dosage: 2 GRAM PER KILOGRAM, QMT
     Route: 042
     Dates: start: 201608, end: 201608
  2. HUMAN IMMUNOGLOBULIN (NC) [Suspect]
     Active Substance: HUMAN IMMUNOGLOBULIN G
     Indication: DONOR SPECIFIC ANTIBODY PRESENT

REACTIONS (5)
  - Product use in unapproved indication [Unknown]
  - Drug-induced liver injury [Recovered/Resolved]
  - Hepatic enzyme increased [Recovered/Resolved]
  - Abdominal pain upper [Recovered/Resolved]
  - No adverse event [Unknown]
